FAERS Safety Report 6709823-7 (Version None)
Quarter: 2010Q2

REPORT INFORMATION
  Report Type: 
  Country: None (occurrence: None)
  Receive Date: 20100504
  Receipt Date: 20100426
  Transmission Date: 20101027
  Serious: Yes (Death, Life-Threatening, Hospitalization, Other)
  Sender: FDA-Public Use
  Company Number: A0854356A

PATIENT
  Age: 54 Year
  Sex: Female
  Weight: 74.8 kg

DRUGS (14)
  1. MELPHALAN HYDROCHLORIDE [Suspect]
     Indication: AMYLOIDOSIS
     Dosage: 70MGM2 CYCLIC
     Route: 042
     Dates: start: 20100309, end: 20100310
  2. VELCADE [Suspect]
     Indication: AMYLOIDOSIS
     Dosage: 1MGM2 CYCLIC
     Route: 042
     Dates: start: 20100119
  3. DEXAMETHASONE [Suspect]
     Indication: AMYLOIDOSIS
     Dosage: 20MG CYCLIC
     Route: 048
     Dates: start: 20100119
  4. ACYCLOVIR [Concomitant]
  5. FLUCONAZOLE [Concomitant]
  6. BUMETANIDE [Concomitant]
  7. FUROSEMIDE [Concomitant]
  8. POTASSIUM CHLORIDE [Concomitant]
  9. LORAZEPAM [Concomitant]
  10. GRANISETRON [Concomitant]
  11. OXYCODONE [Concomitant]
  12. DIPHENHYDRAMINE [Concomitant]
  13. ACETAMINOPHEN [Concomitant]
  14. FILGRASTIM [Concomitant]

REACTIONS (11)
  - ACIDOSIS [None]
  - ACUTE RESPIRATORY DISTRESS SYNDROME [None]
  - ATRIAL FLUTTER [None]
  - CARDIAC ARREST [None]
  - FEBRILE NEUTROPENIA [None]
  - HYPOTENSION [None]
  - HYPOXIC ENCEPHALOPATHY [None]
  - MULTI-ORGAN FAILURE [None]
  - RENAL FAILURE ACUTE [None]
  - SEPTIC SHOCK [None]
  - SYNCOPE [None]
